FAERS Safety Report 11697121 (Version 1)
Quarter: 2015Q4

REPORT INFORMATION
  Report Type: Spontaneous
  Country: US (occurrence: US)
  Receive Date: 20151104
  Receipt Date: 20151104
  Transmission Date: 20160304
  Serious: Yes (Death)
  Sender: FDA-Public Use
  Company Number: US-SA-2015SA175907

PATIENT

DRUGS (1)
  1. CLOLAR [Suspect]
     Active Substance: CLOFARABINE
     Route: 042

REACTIONS (1)
  - Death [Fatal]
